FAERS Safety Report 21034003 (Version 1)
Quarter: 2022Q3

REPORT INFORMATION
  Report Type: Report from Study
  Country: MX (occurrence: MX)
  Receive Date: 20220701
  Receipt Date: 20220701
  Transmission Date: 20221026
  Serious: Yes (Death)
  Sender: FDA-Public Use
  Company Number: MX-BAYER-2022A081601

PATIENT
  Age: 65 Year
  Sex: Male

DRUGS (2)
  1. NEXAVAR [Suspect]
     Active Substance: SORAFENIB
     Indication: Hepatocellular carcinoma
     Dosage: 400 MG, BID (400 MILLIGRAMS IN THE MORNING AND 400 MILLIGRAMS AT NIGHT)
     Route: 048
     Dates: start: 20220128, end: 20220604
  2. TRAMADOL [Concomitant]
     Active Substance: TRAMADOL
     Indication: Pain
     Dosage: 100 MG, BID (100 MILLIGRAMS IN THE MORNING AND 100 MILLIGRAMS AT NIGHT)
     Route: 048
     Dates: start: 20220601

REACTIONS (3)
  - Chronic kidney disease [Fatal]
  - Body temperature increased [Recovered/Resolved]
  - Diarrhoea [Recovered/Resolved with Sequelae]

NARRATIVE: CASE EVENT DATE: 20220525
